FAERS Safety Report 25907531 (Version 1)
Quarter: 2025Q4

REPORT INFORMATION
  Report Type: Spontaneous
  Country: EU (occurrence: EU)
  Receive Date: 20251010
  Receipt Date: 20251010
  Transmission Date: 20260118
  Serious: Yes (Other)
  Sender: RANBAXY
  Company Number: EU-SUN PHARMACEUTICAL INDUSTRIES LTD-2025R1-530830

PATIENT
  Age: 64 Year
  Sex: Female

DRUGS (5)
  1. UREA [Suspect]
     Active Substance: UREA
     Indication: Hyperkeratosis
     Dosage: UNK
     Route: 061
  2. UREA [Suspect]
     Active Substance: UREA
     Indication: Dry skin
  3. UREA [Suspect]
     Active Substance: UREA
     Indication: Skin hyperpigmentation
  4. UREA [Suspect]
     Active Substance: UREA
     Indication: Pruritus
  5. HYDROXYUREA [Suspect]
     Active Substance: HYDROXYUREA
     Indication: Thrombocytosis
     Dosage: UNK
     Route: 065

REACTIONS (3)
  - Condition aggravated [Recovering/Resolving]
  - Drug ineffective [Unknown]
  - Pruritus [Recovered/Resolved]
